FAERS Safety Report 9349155 (Version 2)
Quarter: 2013Q3

REPORT INFORMATION
  Report Type: Spontaneous
  Country: US (occurrence: US)
  Receive Date: 20130614
  Receipt Date: 20130823
  Transmission Date: 20140515
  Serious: Yes (Hospitalization)
  Sender: FDA-Public Use
  Company Number: US-BAYER-2013-072676

PATIENT
  Age: 26 Year
  Sex: Female

DRUGS (4)
  1. YASMIN [Suspect]
     Dosage: UNK
     Dates: start: 20070515, end: 20070612
  2. HYDROCODONE [Concomitant]
  3. ACETAMINOPHEN [Concomitant]
  4. MOTRIN [Concomitant]

REACTIONS (8)
  - Pelvic venous thrombosis [None]
  - Pain [None]
  - Injury [None]
  - General physical health deterioration [None]
  - Anxiety [None]
  - Emotional distress [None]
  - Anhedonia [None]
  - Pain [None]
